FAERS Safety Report 6493116-X (Version None)
Quarter: 2009Q4

REPORT INFORMATION
  Report Type: 
  Country: None (occurrence: None)
  Receive Date: 20091214
  Receipt Date: 20091203
  Transmission Date: 20100525
  Serious: Yes (Hospitalization)
  Sender: FDA-Public Use
  Company Number: US-AMGEN-QUU378352

PATIENT
  Sex: Female

DRUGS (2)
  1. ENBREL [Suspect]
     Indication: RHEUMATOID ARTHRITIS
     Route: 058
     Dates: start: 19900115
  2. METHOTREXATE [Concomitant]
     Route: 048

REACTIONS (8)
  - ALOPECIA [None]
  - ARTHRALGIA [None]
  - ASTHENIA [None]
  - HAND DEFORMITY [None]
  - INJECTION SITE PAIN [None]
  - INJURY ASSOCIATED WITH DEVICE [None]
  - JOINT SWELLING [None]
  - RHEUMATOID ARTHRITIS [None]
